FAERS Safety Report 24354521 (Version 1)
Quarter: 2024Q3

REPORT INFORMATION
  Report Type: Spontaneous
  Country: PL (occurrence: PL)
  Receive Date: 20240923
  Receipt Date: 20240923
  Transmission Date: 20241016
  Serious: Yes (Life-Threatening)
  Sender: BEIGENE
  Company Number: PL-BEIGENE-BGN-2024-015057

PATIENT

DRUGS (1)
  1. BRUKINSA [Suspect]
     Active Substance: ZANUBRUTINIB
     Indication: Chronic lymphocytic leukaemia
     Dosage: STANDARD DOSE

REACTIONS (2)
  - Tumour lysis syndrome [Recovered/Resolved]
  - Weight decreased [Recovered/Resolved]
